FAERS Safety Report 4763676-5 (Version None)
Quarter: 2005Q3

REPORT INFORMATION
  Report Type: 
  Country: None (occurrence: None)
  Receive Date: 20050901
  Receipt Date: 20050502
  Transmission Date: 20060218
  Serious: No
  Sender: FDA-Public Use
  Company Number: 200510495BWH

PATIENT
  Age: 48 Year
  Sex: Male

DRUGS (7)
  1. LEVITRA [Suspect]
     Dosage: 10MG TOTAL DAILY ORAL
     Route: 048
  2. LEVITRA [Suspect]
     Dosage: 10MG TOTAL DAILY ORAL
     Route: 048
     Dates: start: 20040101
  3. LEVITRA [Suspect]
     Dosage: 20MG TOTAL DAILY ORAL
     Route: 048
     Dates: start: 20050301
  4. LIPITOR [Concomitant]
  5. VIAGRA [Concomitant]
  6. CLONAZEPAM [Concomitant]
  7. ZOLOFT [Concomitant]

REACTIONS (1)
  - DRUG INEFFECTIVE [None]
